FAERS Safety Report 20247285 (Version 1)
Quarter: 2021Q4

REPORT INFORMATION
  Report Type: Spontaneous
  Country: FR (occurrence: FR)
  Receive Date: 20211229
  Receipt Date: 20211229
  Transmission Date: 20220303
  Serious: Yes (Other)
  Sender: FDA-Public Use
  Company Number: None

PATIENT
  Age: 60 Year
  Sex: Male
  Weight: 73 kg

DRUGS (5)
  1. REMICADE [Suspect]
     Active Substance: INFLIXIMAB
     Indication: Rheumatoid arthritis
     Dosage: 5 MG/KG
     Route: 042
     Dates: start: 20210201, end: 20211025
  2. PREDNISONE [Concomitant]
     Active Substance: PREDNISONE
     Route: 065
  3. METHOTREXATE SODIUM [Concomitant]
     Active Substance: METHOTREXATE SODIUM
  4. DAFALGAN [Concomitant]
     Active Substance: ACETAMINOPHEN
  5. FOLIC ACID [Concomitant]
     Active Substance: FOLIC ACID

REACTIONS (1)
  - Malignant melanoma [Not Recovered/Not Resolved]
